FAERS Safety Report 15225378 (Version 1)
Quarter: 2018Q3

REPORT INFORMATION
  Report Type: Spontaneous
  Country: FR (occurrence: FR)
  Receive Date: 20180801
  Receipt Date: 20180801
  Transmission Date: 20181010
  Serious: Yes (Other)
  Sender: FDA-Public Use
  Company Number: FR-TEVA-2018-FR-933898

PATIENT
  Age: 53 Year
  Sex: Male

DRUGS (6)
  1. SILVER SULFADIAZINE. [Concomitant]
     Active Substance: SILVER SULFADIAZINE
     Indication: CELLULITIS
     Route: 061
     Dates: start: 201211, end: 201301
  2. FOLIC ACID. [Concomitant]
     Active Substance: FOLIC ACID
     Indication: SARCOIDOSIS
     Dosage: ADMINISTERED THREE DAYS AFTER METHOTREXATE INJECTION EVERY WEEK
     Route: 065
     Dates: start: 2011
  3. METHOTREXATE. [Suspect]
     Active Substance: METHOTREXATE
     Indication: SARCOIDOSIS
     Route: 058
     Dates: start: 2011, end: 201409
  4. PREDNISONE. [Concomitant]
     Active Substance: PREDNISONE
     Indication: SARCOIDOSIS
     Route: 065
     Dates: start: 2011, end: 201211
  5. AMOXICILLIN/CLAVULANIC ACID [Concomitant]
     Active Substance: AMOXICILLIN\CLAVULANIC ACID
     Indication: CELLULITIS
     Route: 065
     Dates: start: 2012
  6. CLINDAMYCIN. [Concomitant]
     Active Substance: CLINDAMYCIN
     Indication: CELLULITIS
     Route: 065
     Dates: start: 2012

REACTIONS (2)
  - Impaired healing [Recovered/Resolved]
  - Skin graft failure [Recovered/Resolved]
